FAERS Safety Report 4274841-8 (Version None)
Quarter: 2004Q1

REPORT INFORMATION
  Report Type: 
  Country: None (occurrence: None)
  Receive Date: 20040116
  Receipt Date: 20031217
  Transmission Date: 20041129
  Serious: Yes (Death, Other)
  Sender: FDA-Public Use
  Company Number: S03-FRA-05417-01

PATIENT
  Sex: Female

DRUGS (2)
  1. EBIXA (MEMANTINE) [Suspect]
  2. DONEPEZIL HYDROCHLORIDE [Concomitant]

REACTIONS (3)
  - AGGRESSION [None]
  - FALL [None]
  - LETHARGY [None]
